FAERS Safety Report 4396966-9 (Version None)
Quarter: 2004Q3

REPORT INFORMATION
  Report Type: 
  Country: None (occurrence: None)
  Receive Date: 20040714
  Receipt Date: 20040317
  Transmission Date: 20050211
  Serious: Yes (Life-Threatening, Hospitalization)
  Sender: FDA-Public Use
  Company Number: PHBS2004NL03658

PATIENT
  Age: 29 Year
  Sex: Male
  Weight: 100 kg

DRUGS (17)
  1. CLOZAPINE [Suspect]
     Indication: PSYCHOTIC DISORDER
     Dosage: 100 MG, QD
     Route: 048
     Dates: end: 20040101
  2. TRUXAL [Concomitant]
     Dosage: 15 MG, BID
     Route: 065
     Dates: end: 20040101
  3. OXAZEPAM [Concomitant]
     Dosage: 25 MG, QID
     Route: 065
  4. ERYTHROMYCIN [Concomitant]
     Route: 065
  5. PANTOPRAZOLE [Concomitant]
     Route: 065
     Dates: start: 20040102
  6. DALTEPARIN SODIUM [Concomitant]
     Route: 065
     Dates: start: 20040102
  7. CHLORAMPHENICOL [Concomitant]
     Route: 065
     Dates: start: 20040102
  8. PRIMPERAN INJ [Concomitant]
     Dates: start: 20040102
  9. IPRATROPIUM BROMIDE [Concomitant]
     Route: 065
  10. ALBUTEROL SULFATE [Concomitant]
     Route: 065
  11. LORAZEPAM [Concomitant]
     Route: 065
  12. MULTI-VITAMINS [Concomitant]
     Route: 065
  13. DALTERPARINE [Concomitant]
     Route: 065
  14. PANTOPRAZOLE [Interacting]
     Route: 065
  15. ARANESP [Concomitant]
     Route: 065
  16. OLANZAPINE [Concomitant]
     Dosage: 2.5 MG, BID
     Route: 065
     Dates: start: 20040109
  17. OLANZAPINE [Concomitant]
     Dosage: 5 MG, BID
     Route: 065
     Dates: start: 20040119

REACTIONS (11)
  - BLOOD CREATINE PHOSPHOKINASE INCREASED [None]
  - BLOOD LACTATE DEHYDROGENASE INCREASED [None]
  - CATATONIA [None]
  - COUGH [None]
  - DIALYSIS [None]
  - DRUG LEVEL INCREASED [None]
  - PNEUMONIA [None]
  - PROTHROMBIN TIME PROLONGED [None]
  - PYREXIA [None]
  - RENAL IMPAIRMENT [None]
  - RHABDOMYOLYSIS [None]
